FAERS Safety Report 6003257-9 (Version None)
Quarter: 2008Q4

REPORT INFORMATION
  Report Type: 
  Country: None (occurrence: None)
  Receive Date: 20081212
  Receipt Date: 20081208
  Transmission Date: 20090506
  Serious: Yes (Life-Threatening)
  Sender: FDA-Public Use
  Company Number: 2008SP024771

PATIENT
  Age: 24 Year
  Sex: Male

DRUGS (4)
  1. INTRON A [Suspect]
     Indication: CHRONIC HEPATITIS
     Dosage: 3 MIU; QD; IM
     Route: 030
  2. GLUCURONNOLACTONE [Concomitant]
  3. SILYMARIN [Concomitant]
  4. VITAMINS [Concomitant]

REACTIONS (3)
  - LOSS OF CONSCIOUSNESS [None]
  - SHOCK [None]
  - SYNCOPE [None]
